FAERS Safety Report 7269987-6 (Version None)
Quarter: 2011Q1

REPORT INFORMATION
  Report Type: 
  Country: None (occurrence: None)
  Receive Date: 20110125
  Receipt Date: 20110110
  Transmission Date: 20110831
  Serious: Yes (Hospitalization, Other)
  Sender: FDA-Public Use
  Company Number: AUR-APL-2011-00254

PATIENT
  Age: 60 Year
  Sex: Female

DRUGS (10)
  1. SIMVASTATIN [Suspect]
     Dosage: 20MG-QHS
  2. ACETYLSALICYLIC ACID [Suspect]
     Dosage: 75MG-DAILY
  3. LYRICA [Suspect]
     Indication: GENERALISED ANXIETY DISORDER
     Dosage: 50-100MG-QD-TID
     Dates: start: 20100501
  4. DIAZEPAM [Suspect]
  5. PROMETHAZINE [Suspect]
     Dosage: 50MG
  6. SERTRALINE [Suspect]
     Dosage: 100-150MG
  7. ZOPICLONE [Suspect]
     Indication: SLEEP DISORDER
     Dosage: 3.75MG-QHS
  8. ATENOLOL [Suspect]
     Dosage: 25MG-DAILY
  9. DOTHIEPIN HYDROCHLORIDE [Suspect]
     Indication: DEPRESSION
     Dosage: 50MG-DAILY
  10. CITALOPRAM HYDROBROMIDE [Suspect]

REACTIONS (41)
  - MUSCLE TWITCHING [None]
  - INITIAL INSOMNIA [None]
  - DECREASED APPETITE [None]
  - WEIGHT DECREASED [None]
  - DRUG INEFFECTIVE [None]
  - FALL [None]
  - HYPERHIDROSIS [None]
  - DIARRHOEA [None]
  - TENSION [None]
  - GENERALISED ANXIETY DISORDER [None]
  - SUICIDAL IDEATION [None]
  - TREMOR [None]
  - VOMITING [None]
  - MARITAL PROBLEM [None]
  - IRRITABILITY [None]
  - DISEASE RECURRENCE [None]
  - ADJUSTMENT DISORDER [None]
  - HYPOCHONDRIASIS [None]
  - DIZZINESS [None]
  - HOSTILITY [None]
  - MULTIPLE DRUG OVERDOSE ACCIDENTAL [None]
  - CONFUSIONAL STATE [None]
  - URINARY TRACT INFECTION [None]
  - FEELING JITTERY [None]
  - MIDDLE INSOMNIA [None]
  - AGGRESSION [None]
  - NAUSEA [None]
  - DEPRESSION [None]
  - SOMATOFORM DISORDER [None]
  - ORAL MUCOSAL DISCOLOURATION [None]
  - TREATMENT NONCOMPLIANCE [None]
  - THINKING ABNORMAL [None]
  - PAIN [None]
  - SYNCOPE [None]
  - MYALGIA [None]
  - PANIC ATTACK [None]
  - MACROCYTOSIS [None]
  - ANAEMIA [None]
  - MUSCLE ATROPHY [None]
  - DEPRESSED LEVEL OF CONSCIOUSNESS [None]
  - MENTAL IMPAIRMENT [None]
